FAERS Safety Report 9240958 (Version 1)
Quarter: 2013Q2

REPORT INFORMATION
  Report Type: Spontaneous
  Country: US (occurrence: None)
  Receive Date: 20130418
  Receipt Date: 20130418
  Transmission Date: 20140414
  Serious: Yes (Other)
  Sender: FDA-Public Use
  Company Number: None

PATIENT
  Age: 58 Year
  Sex: Female
  Weight: 58.51 kg

DRUGS (2)
  1. ESTRADIOL [Suspect]
     Dosage: 0.05 MG QWK DERM
     Route: 062
  2. ESTRADIOL [Suspect]
     Route: 048
     Dates: start: 20110509

REACTIONS (1)
  - Rash [None]
